FAERS Safety Report 4852092-3 (Version None)
Quarter: 2005Q4

REPORT INFORMATION
  Report Type: 
  Country: None (occurrence: None)
  Receive Date: 20051212
  Receipt Date: 20051212
  Transmission Date: 20060501
  Serious: Yes (Life-Threatening, Other)
  Sender: FDA-Public Use
  Company Number: None

PATIENT
  Sex: Male
  Weight: 74.8435 kg

DRUGS (2)
  1. RISPERDAL [Suspect]
     Indication: BIPOLAR DISORDER
     Dosage: 2 MG ONCE A DAY AT NIGH PO
     Route: 048
     Dates: start: 20050101, end: 20050706
  2. RISPERDAL [Suspect]
     Indication: MANIA
     Dosage: 2 MG ONCE A DAY AT NIGH PO
     Route: 048
     Dates: start: 20050101, end: 20050706

REACTIONS (6)
  - BEDRIDDEN [None]
  - DRUG DISPENSING ERROR [None]
  - FEELING ABNORMAL [None]
  - IMPAIRED DRIVING ABILITY [None]
  - LOSS OF EMPLOYMENT [None]
  - PHARMACEUTICAL PRODUCT COMPLAINT [None]
